FAERS Safety Report 9565595 (Version 6)
Quarter: 2015Q4

REPORT INFORMATION
  Report Type: Spontaneous
  Country: FR (occurrence: FR)
  Receive Date: 20130930
  Receipt Date: 20151111
  Transmission Date: 20160305
  Serious: Yes (Death, Hospitalization, Other)
  Sender: FDA-Public Use
  Company Number: FR-PFIZER INC-2013269330

PATIENT
  Age: 2 Day
  Sex: Male
  Weight: 2.87 kg

DRUGS (13)
  1. AMOXICILLIN. [Concomitant]
     Active Substance: AMOXICILLIN
     Indication: ANTIBIOTIC THERAPY
     Dosage: UNK
     Dates: start: 20130810
  2. CLAFORAN [Concomitant]
     Active Substance: CEFOTAXIME SODIUM
     Indication: ANTIBIOTIC THERAPY
     Dosage: UNK
     Dates: start: 20130810
  3. PRODILANTIN [Suspect]
     Active Substance: FOSPHENYTOIN SODIUM
     Dosage: 144 MG, SINGLE
     Route: 042
     Dates: start: 20130813, end: 20130813
  4. FOLIC ACID. [Concomitant]
     Active Substance: FOLIC ACID
     Indication: SEIZURE
     Dosage: UNK
     Dates: start: 20130812
  5. PRODILANTIN [Suspect]
     Active Substance: FOSPHENYTOIN SODIUM
     Dosage: 14.4 MG (5 MG/KG), SINGLE
     Route: 042
     Dates: start: 20130813, end: 20130813
  6. PRODILANTIN [Suspect]
     Active Substance: FOSPHENYTOIN SODIUM
     Dosage: 14.4 MG, SINGLE
     Route: 042
     Dates: start: 20130814, end: 20130814
  7. PRODILANTIN [Suspect]
     Active Substance: FOSPHENYTOIN SODIUM
     Indication: SEIZURE
     Dosage: 43 MG, SINGLE LOADING DOSE
     Route: 042
     Dates: start: 20130812, end: 20130812
  8. PRODILANTIN [Suspect]
     Active Substance: FOSPHENYTOIN SODIUM
     Dosage: 144 MG, SINGLE
     Route: 042
     Dates: start: 20130813, end: 20130813
  9. GARDENALE [Concomitant]
     Active Substance: PHENOBARBITAL
     Indication: HYPOTONIA
     Dosage: UNK
     Dates: start: 20130810
  10. AMIKLIN [Concomitant]
     Active Substance: AMIKACIN SULFATE
     Indication: ANTIBIOTIC THERAPY
     Dosage: UNK
     Dates: start: 20130810
  11. RIVOTRIL [Concomitant]
     Active Substance: CLONAZEPAM
     Indication: HYPOTONIA
     Dosage: UNK
     Dates: start: 20130810
  12. PYRIDOXINE [Concomitant]
     Active Substance: PYRIDOXINE
     Indication: SEIZURE
     Dosage: UNK
     Dates: start: 20130812
  13. BIOTIN [Concomitant]
     Active Substance: BIOTIN
     Indication: SEIZURE
     Dosage: UNK
     Dates: start: 20130812

REACTIONS (7)
  - Accidental overdose [Fatal]
  - Hyperkalaemia [Fatal]
  - Hypocalcaemia [Fatal]
  - Product use issue [Fatal]
  - Metabolic acidosis [Fatal]
  - Hyperglycaemia [Fatal]
  - Acute kidney injury [Fatal]

NARRATIVE: CASE EVENT DATE: 20130812
